FAERS Safety Report 4425542-4 (Version None)
Quarter: 2004Q3

REPORT INFORMATION
  Report Type: 
  Country: None (occurrence: None)
  Receive Date: 20040810
  Receipt Date: 20040728
  Transmission Date: 20050211
  Serious: Yes (Life-Threatening, Hospitalization, Other)
  Sender: FDA-Public Use
  Company Number: 2004031488

PATIENT
  Age: 55 Year
  Sex: Male

DRUGS (9)
  1. LOPID [Suspect]
     Indication: BLOOD CHOLESTEROL INCREASED
     Dosage: 1200 MG (600 MG, 2 IN 1 D), ORAL
     Route: 048
     Dates: start: 20040508, end: 20040510
  2. LOPID [Suspect]
     Indication: HYPERTRIGLYCERIDAEMIA
     Dosage: 1200 MG (600 MG, 2 IN 1 D), ORAL
     Route: 048
     Dates: start: 20040508, end: 20040510
  3. ASASANTIN (ACETYLSALICYLIC ACID, DIPYRIDAMOLE) [Suspect]
     Indication: CEREBROVASCULAR ACCIDENT
     Dosage: 50/400 MG (2 IN 1 D), ORAL
     Route: 048
     Dates: start: 20040401, end: 20040501
  4. ASASANTIN (ACETYLSALICYLIC ACID, DIPYRIDAMOLE) [Suspect]
     Indication: TRANSIENT ISCHAEMIC ATTACK
     Dosage: 50/400 MG (2 IN 1 D), ORAL
     Route: 048
     Dates: start: 20040401, end: 20040501
  5. DILTIAZEM HYDROCHLORIDE [Concomitant]
  6. ATORVASTATIN (ATORVASTATIN) [Concomitant]
  7. OXYCODONE HCL [Concomitant]
  8. ASPIRIN [Concomitant]
  9. SILDENAFIL CITRATE (SILDENAFIL CITRATE) [Concomitant]

REACTIONS (7)
  - ACUTE RESPIRATORY FAILURE [None]
  - ANGIONEUROTIC OEDEMA [None]
  - BLISTER [None]
  - BLOOD PH DECREASED [None]
  - BUNDLE BRANCH BLOCK LEFT [None]
  - OBSTRUCTIVE AIRWAYS DISORDER [None]
  - SUNBURN [None]
